FAERS Safety Report 5503584-5 (Version None)
Quarter: 2007Q4

REPORT INFORMATION
  Report Type: 
  Country: None (occurrence: None)
  Receive Date: 20071029
  Receipt Date: 20071021
  Transmission Date: 20080405
  Serious: Yes (Death, Hospitalization, Other)
  Sender: FDA-Public Use
  Company Number: 144-C5013-07101133

PATIENT
  Age: 69 Year
  Sex: Male

DRUGS (6)
  1. CC-5013 (LENALIDOMIDE) (CAPSULES) [Suspect]
     Indication: DIALYSIS
     Dosage: 15 MG, 3 DAYS/WEEK, ORAL
     Route: 048
     Dates: start: 20070910, end: 20071001
  2. CC-5013 (LENALIDOMIDE) (CAPSULES) [Suspect]
     Indication: MULTIPLE MYELOMA
     Dosage: 15 MG, 3 DAYS/WEEK, ORAL
     Route: 048
     Dates: start: 20070910, end: 20071001
  3. DEXAMETHASONE TAB [Concomitant]
  4. DITRO (ACETYLSALICYLIC ACID) [Concomitant]
  5. CLOPIDOGREL BISULFATE [Concomitant]
  6. ENOXAPARIN SODIUM [Concomitant]

REACTIONS (3)
  - NEUTROPENIA [None]
  - PSEUDOMONAL SEPSIS [None]
  - THROMBOCYTOPENIA [None]
